FAERS Safety Report 22201492 (Version 1)
Quarter: 2023Q2

REPORT INFORMATION
  Report Type: Spontaneous
  Country: US (occurrence: US)
  Receive Date: 20230412
  Receipt Date: 20230412
  Transmission Date: 20230722
  Serious: No
  Sender: FDA-Public Use
  Company Number: US-ELI_LILLY_AND_COMPANY-US202304004224

PATIENT
  Sex: Female

DRUGS (7)
  1. HUMALOG JUNIOR KWIKPEN [Suspect]
     Active Substance: INSULIN LISPRO
     Indication: Type 2 diabetes mellitus
     Dosage: 9 U, PRN (SLIDING SCALE AND BASE DOSE OF 9 UNITS)
     Route: 065
     Dates: start: 202209
  2. HUMALOG JUNIOR KWIKPEN [Suspect]
     Active Substance: INSULIN LISPRO
     Indication: Type 2 diabetes mellitus
     Dosage: 9 U, PRN (SLIDING SCALE AND BASE DOSE OF 9 UNITS)
     Route: 065
     Dates: start: 202209
  3. HUMALOG JUNIOR KWIKPEN [Suspect]
     Active Substance: INSULIN LISPRO
     Dosage: 9 U, PRN (SLIDING SCALE AND BASE DOSE OF 9 UNITS)
     Route: 065
     Dates: start: 20230322
  4. HUMALOG JUNIOR KWIKPEN [Suspect]
     Active Substance: INSULIN LISPRO
     Dosage: 9 U, PRN (SLIDING SCALE AND BASE DOSE OF 9 UNITS)
     Route: 065
     Dates: start: 20230401
  5. LEVEMIR [Concomitant]
     Active Substance: INSULIN DETEMIR
     Indication: Type 2 diabetes mellitus
     Dosage: 30 U, DAILY
  6. JARDIANCE [Concomitant]
     Active Substance: EMPAGLIFLOZIN
     Indication: Type 2 diabetes mellitus
     Dosage: 10 MG, DAILY
  7. JANUVIA [Concomitant]
     Active Substance: SITAGLIPTIN PHOSPHATE
     Indication: Type 2 diabetes mellitus
     Dosage: 50 MG, DAILY

REACTIONS (1)
  - Incorrect dose administered [Unknown]
